FAERS Safety Report 11010778 (Version 1)
Quarter: 2015Q2

REPORT INFORMATION
  Report Type: Spontaneous
  Country: US (occurrence: US)
  Receive Date: 20150410
  Receipt Date: 20150410
  Transmission Date: 20150821
  Serious: Yes (Other)
  Sender: FDA-Public Use
  Company Number: US-ASTRAZENECA-2015SE31650

PATIENT
  Age: 74 Year
  Sex: Male
  Weight: 100.2 kg

DRUGS (16)
  1. AMLODIPINE BESYLATE/BENAZEPRIL [Concomitant]
     Dosage: 5 MG-40 MG: DAILY
     Route: 048
  2. AMLODIPINE BESYLATE/BENAZEPRIL [Concomitant]
     Dosage: 10 MG-40 MG; DAILY
     Route: 048
     Dates: start: 20100301, end: 20110218
  3. LIPASE/PROTEASE/AMYLASE [Concomitant]
     Dosage: 6,000 UNIT-19,000 UNIT-30,000 UNIT; 3 TIMES EVERY DAY BEFORE MEALS
     Route: 048
  4. HYDROCODONE/APAP [Concomitant]
     Active Substance: ACETAMINOPHEN\HYDROCODONE
     Dosage: 5/500 MG
     Route: 048
     Dates: start: 20001024
  5. BYETTA [Suspect]
     Active Substance: EXENATIDE
     Dosage: 10 MCG/0.04 MI PER DOSE; 30-60 MNINUTES PRIOR TO BREAKFEST AND DINNER
     Route: 058
     Dates: start: 20080204, end: 20080522
  6. ASPIRIN. [Concomitant]
     Active Substance: ASPIRIN
     Route: 048
  7. BYETTA [Suspect]
     Active Substance: EXENATIDE
     Dosage: 10 MCG/0.04 MI PER DOSE; 30-60 MNINUTES PRIOR TO BREAKFEST AND DINNER
     Route: 058
     Dates: start: 20100610
  8. AMLODIPINE BESYLATE/BENAZEPRIL [Concomitant]
     Dosage: 5/10 MG
     Route: 048
     Dates: start: 20010412, end: 20010728
  9. BYETTA [Suspect]
     Active Substance: EXENATIDE
     Dosage: 5 MCG/0.02 MI PER DOSE; TWO TIMES A DAY
     Route: 058
     Dates: start: 20080522, end: 20080819
  10. BYETTA [Suspect]
     Active Substance: EXENATIDE
     Dosage: 5 MCG/0.02 MI PER DOSE; TWO TIMES A DAY
     Route: 058
     Dates: start: 20100428, end: 20100610
  11. SIMVASTATIN. [Concomitant]
     Active Substance: SIMVASTATIN
     Route: 048
     Dates: start: 20120109, end: 20120702
  12. OXYCODONE HCL [Concomitant]
     Active Substance: OXYCODONE HYDROCHLORIDE
     Dosage: 5 MG
     Route: 048
     Dates: start: 20000915
  13. ASPIRIN. [Concomitant]
     Active Substance: ASPIRIN
     Route: 048
     Dates: start: 20080204, end: 20100301
  14. LIPITOR [Concomitant]
     Active Substance: ATORVASTATIN CALCIUM
     Dosage: 20 MG; HALF TABLET DAILY
     Route: 048
     Dates: start: 20080408, end: 20081013
  15. KEFLEX [Concomitant]
     Active Substance: CEPHALEXIN
  16. HYDROCHLOROTHIAZIDE. [Concomitant]
     Active Substance: HYDROCHLOROTHIAZIDE
     Route: 048
     Dates: start: 20080204, end: 20081208

REACTIONS (4)
  - Jaundice cholestatic [Unknown]
  - Prostate cancer [Unknown]
  - Pancreatitis acute [Unknown]
  - Adenocarcinoma pancreas [Unknown]

NARRATIVE: CASE EVENT DATE: 201207
